FAERS Safety Report 14246956 (Version 1)
Quarter: 2017Q4

REPORT INFORMATION
  Report Type: Spontaneous
  Country: US (occurrence: US)
  Receive Date: 20171204
  Receipt Date: 20171204
  Transmission Date: 20180321
  Serious: No
  Sender: FDA-Public Use
  Company Number: US-PFIZER INC-2017516930

PATIENT
  Sex: Female

DRUGS (1)
  1. GENTAMICIN SULFATE. [Suspect]
     Active Substance: GENTAMICIN SULFATE
     Dosage: UNK

REACTIONS (7)
  - Drug hypersensitivity [Unknown]
  - Pharyngeal oedema [Unknown]
  - Dysphagia [Unknown]
  - Visual impairment [Unknown]
  - Dehydration [Unknown]
  - Swollen tongue [Unknown]
  - Movement disorder [Unknown]
